FAERS Safety Report 5815642-6 (Version None)
Quarter: 2008Q3

REPORT INFORMATION
  Report Type: 
  Country: None (occurrence: None)
  Receive Date: 20080716
  Receipt Date: 20080708
  Transmission Date: 20090109
  Serious: Yes (Life-Threatening)
  Sender: FDA-Public Use
  Company Number: ACETADOTE_035

PATIENT

DRUGS (1)
  1. ACETYLCYSTEINE [Suspect]

REACTIONS (7)
  - BRADYCARDIA [None]
  - BRONCHOSPASM [None]
  - DIZZINESS [None]
  - HYPERSENSITIVITY [None]
  - OEDEMA PERIPHERAL [None]
  - RASH MACULO-PAPULAR [None]
  - TACHYCARDIA [None]
